APPROVED DRUG PRODUCT: FLUOXETINE HYDROCHLORIDE
Active Ingredient: FLUOXETINE HYDROCHLORIDE
Strength: EQ 10MG BASE
Dosage Form/Route: TABLET;ORAL
Application: A206937 | Product #001
Applicant: TORRENT PHARMACEUTICALS LTD
Approved: Oct 21, 2016 | RLD: No | RS: No | Type: RX